FAERS Safety Report 21769786 (Version 1)
Quarter: 2022Q4

REPORT INFORMATION
  Report Type: Report from Study
  Country: DO (occurrence: DO)
  Receive Date: 20221223
  Receipt Date: 20221223
  Transmission Date: 20230112
  Serious: Yes (Hospitalization, Other)
  Sender: FDA-Public Use
  Company Number: DO-AstraZeneca-2022A406377

PATIENT
  Age: 58 Year
  Sex: Female

DRUGS (2)
  1. METOPROLOL SUCCINATE [Suspect]
     Active Substance: METOPROLOL SUCCINATE
     Indication: Arrhythmia prophylaxis
     Dosage: NOT PROVIDED.
     Route: 048
  2. ATACAND [Suspect]
     Active Substance: CANDESARTAN CILEXETIL
     Indication: Hypertension
     Route: 048

REACTIONS (8)
  - Atrial fibrillation [Unknown]
  - Arrhythmia [Unknown]
  - Cardiac failure [Unknown]
  - Blood cholesterol increased [Unknown]
  - Thrombosis [Unknown]
  - Urinary tract discomfort [Unknown]
  - Heart rate decreased [Unknown]
  - Off label use [Unknown]

NARRATIVE: CASE EVENT DATE: 20140901
